FAERS Safety Report 25221649 (Version 4)
Quarter: 2025Q3

REPORT INFORMATION
  Report Type: Spontaneous
  Country: US (occurrence: US)
  Receive Date: 20250421
  Receipt Date: 20250813
  Transmission Date: 20251021
  Serious: No
  Sender: PFIZER
  Company Number: US-PFIZER INC-202500082653

PATIENT
  Age: 53 Year
  Sex: Female

DRUGS (15)
  1. IBRANCE [Suspect]
     Active Substance: PALBOCICLIB
     Route: 048
     Dates: start: 20250129
  2. IBRANCE [Suspect]
     Active Substance: PALBOCICLIB
     Route: 048
     Dates: start: 20250129
  3. ALBUTEROL AER HFA [Concomitant]
  4. FASLODEX [Concomitant]
     Active Substance: FULVESTRANT
  5. GLUCOSAMINE [Concomitant]
     Active Substance: GLUCOSAMINE
  6. METFORMIN [Concomitant]
     Active Substance: METFORMIN HYDROCHLORIDE
  7. LISINOPRIL [Concomitant]
     Active Substance: LISINOPRIL
  8. SYNTHROID [Concomitant]
     Active Substance: LEVOTHYROXINE SODIUM
  9. FOLIC ACID [Concomitant]
     Active Substance: FOLIC ACID
  10. TRULICITY [Concomitant]
     Active Substance: DULAGLUTIDE
  11. ATORVASTATIN [Concomitant]
     Active Substance: ATORVASTATIN
  12. FUROSEMIDE [Concomitant]
     Active Substance: FUROSEMIDE
  13. MONTELUKAST [Concomitant]
     Active Substance: MONTELUKAST
  14. BENZONATATE [Concomitant]
     Active Substance: BENZONATATE
  15. AZELASTINE [Concomitant]
     Active Substance: AZELASTINE

REACTIONS (6)
  - Diarrhoea [Not Recovered/Not Resolved]
  - Fatigue [Not Recovered/Not Resolved]
  - Sleep disorder [Not Recovered/Not Resolved]
  - Hypercalcaemia [Unknown]
  - Alanine aminotransferase increased [Unknown]
  - Insomnia [Unknown]

NARRATIVE: CASE EVENT DATE: 20250101
